FAERS Safety Report 8516757-4 (Version None)
Quarter: 2012Q2

REPORT INFORMATION
  Report Type: 
  Country: None (occurrence: None)
  Receive Date: 20120406
  Receipt Date: 20091110
  Transmission Date: 20120825
  Serious: Yes (Other)
  Sender: FDA-Public Use
  Company Number: PHEH2009US15488

PATIENT
  Age: 68 Year
  Sex: Male

DRUGS (6)
  1. LASIX [Concomitant]
  2. RESTORIL [Concomitant]
  3. ALEVE /00256202/ (NAPROXEN SODIUM) [Concomitant]
  4. TASIGNA [Suspect]
     Indication: GASTROINTESTINAL STROMAL TUMOUR
     Dosage: 400 MG, BID, ORAL
     Route: 048
     Dates: start: 20090601, end: 20091110
  5. PHENERGAN ^AVENTIS PHARMA^ (PROMETHAZINE HYDROCHLORIDE) [Concomitant]
  6. REQUIP [Concomitant]

REACTIONS (7)
  - ANAEMIA [None]
  - PAIN [None]
  - NEOPLASM MALIGNANT [None]
  - WEIGHT DECREASED [None]
  - DECREASED APPETITE [None]
  - ASTHENIA [None]
  - FLUID RETENTION [None]
